FAERS Safety Report 9235885 (Version 1)
Quarter: 2013Q2

REPORT INFORMATION
  Report Type: Spontaneous
  Country: US (occurrence: US)
  Receive Date: 20130417
  Receipt Date: 20130417
  Transmission Date: 20140414
  Serious: Yes (Other)
  Sender: FDA-Public Use
  Company Number: US-ASTELLAS-2013US004029

PATIENT
  Sex: Female

DRUGS (1)
  1. LEXISCAN [Suspect]
     Indication: PRODUCT USED FOR UNKNOWN INDICATION
     Dosage: UNK
     Route: 065
     Dates: start: 201303, end: 201303

REACTIONS (4)
  - Malaise [Recovered/Resolved]
  - Blood pressure increased [Recovered/Resolved]
  - Vomiting [Recovered/Resolved]
  - Presyncope [Recovered/Resolved]
